FAERS Safety Report 15588678 (Version 2)
Quarter: 2019Q2

REPORT INFORMATION
  Report Type: Spontaneous
  Country: US (occurrence: US)
  Receive Date: 20181106
  Receipt Date: 20190524
  Transmission Date: 20190711
  Serious: Yes (Other)
  Sender: FDA-Public Use
  Company Number: US-SUN PHARMACEUTICAL INDUSTRIES LTD-2018US-190459

PATIENT
  Age: 70 Year
  Sex: Male

DRUGS (5)
  1. KETAMINE [Suspect]
     Active Substance: KETAMINE
     Indication: ANAESTHESIA
     Dosage: 20 MILLIGRAM
     Route: 065
  2. PROPOFOL. [Suspect]
     Active Substance: PROPOFOL
     Indication: ANAESTHESIA
     Dosage: 200 MILLIGRAM, SUBSEQUENTLY INDUCED
     Route: 065
  3. VENLAFAXINE [Suspect]
     Active Substance: VENLAFAXINE HYDROCHLORIDE
     Indication: VESTIBULAR MIGRAINE
     Dosage: UNK
     Route: 065
  4. MEPERIDINE [Suspect]
     Active Substance: MEPERIDINE
     Indication: POST PROCEDURAL COMPLICATION
     Dosage: 25 MILLIGRAM
     Route: 042
  5. FENTANYL. [Suspect]
     Active Substance: FENTANYL
     Indication: ANAESTHESIA
     Dosage: 225 MICROGRAM, FENTANYL BOLUSES FOR A TOTAL OF 225 MCG
     Route: 040

REACTIONS (1)
  - Serotonin syndrome [Recovered/Resolved]
